FAERS Safety Report 20225879 (Version 2)
Quarter: 2022Q1

REPORT INFORMATION
  Report Type: Spontaneous
  Country: GB (occurrence: GB)
  Receive Date: 20211224
  Receipt Date: 20220105
  Transmission Date: 20220423
  Serious: Yes (Other)
  Sender: FDA-Public Use
  Company Number: GB-SA-SAC20211223000196

PATIENT
  Age: 38 Year
  Sex: Male

DRUGS (2)
  1. DUPILUMAB [Suspect]
     Active Substance: DUPILUMAB
     Indication: Dermatitis atopic
     Dosage: 300 MG, QOW
     Route: 058
     Dates: start: 20181110, end: 20210811
  2. DUPILUMAB [Suspect]
     Active Substance: DUPILUMAB
     Indication: Eczema

REACTIONS (2)
  - Lymphoma [Unknown]
  - Lymphadenopathy [Unknown]
